FAERS Safety Report 10276304 (Version 1)
Quarter: 2014Q3

REPORT INFORMATION
  Report Type: Spontaneous
  Country: US (occurrence: US)
  Receive Date: 20140703
  Receipt Date: 20140703
  Transmission Date: 20150326
  Serious: Yes (Hospitalization)
  Sender: FDA-Public Use
  Company Number: PHHY2014US080230

PATIENT
  Age: 82 Year
  Sex: Female

DRUGS (2)
  1. METOCLOPRAMIDE. [Suspect]
     Active Substance: METOCLOPRAMIDE
  2. TRAMADOL [Suspect]
     Active Substance: TRAMADOL
     Indication: ABDOMINAL PAIN

REACTIONS (3)
  - Sedation [Unknown]
  - Malnutrition [Unknown]
  - Aspiration [Unknown]
